FAERS Safety Report 20237475 (Version 1)
Quarter: 2021Q4

REPORT INFORMATION
  Report Type: Spontaneous
  Country: BR (occurrence: BR)
  Receive Date: 20211228
  Receipt Date: 20211228
  Transmission Date: 20220303
  Serious: Yes (Hospitalization, Other)
  Sender: FDA-Public Use
  Company Number: BR-FERRINGPH-2021FE08161

PATIENT
  Age: 38 Year
  Sex: Female

DRUGS (11)
  1. MENOTROPINS [Suspect]
     Active Substance: MENOTROPINS
     Indication: Assisted reproductive technology
     Dosage: 75 IU, DAILY
     Route: 065
  2. TRIPTORELIN ACETATE [Suspect]
     Active Substance: TRIPTORELIN ACETATE
     Indication: Assisted reproductive technology
     Dosage: 0.2 MG, ONCE/SINGLE
     Route: 065
  3. CETRORELIX [Suspect]
     Active Substance: CETRORELIX
     Indication: Assisted reproductive technology
     Dosage: 0.25 MG, DAILY
     Route: 065
  4. FOLLITROPIN ALFA [Suspect]
     Active Substance: FOLLITROPIN ALFA
     Indication: Assisted reproductive technology
     Dosage: 225 IU, DAILY
     Route: 065
  5. CHORIOGONADOTROPIN ALFA [Suspect]
     Active Substance: CHORIOGONADOTROPIN ALFA
     Indication: Assisted reproductive technology
     Dosage: 250 UG, ONCE/SINGLE
     Route: 065
  6. PROPOFOL [Suspect]
     Active Substance: PROPOFOL
     Indication: Anaesthesia
     Route: 065
  7. FENTANYL [Suspect]
     Active Substance: FENTANYL
     Indication: Anaesthesia
     Route: 065
  8. KETOPROFEN [Suspect]
     Active Substance: KETOPROFEN
     Indication: Postoperative care
     Route: 065
  9. DEXAMETHASONE [Suspect]
     Active Substance: DEXAMETHASONE
     Indication: Postoperative care
     Route: 065
  10. DIPYRONE [Suspect]
     Active Substance: DIPYRONE
     Indication: Postoperative care
     Route: 065
  11. ONDANSETRON [Suspect]
     Active Substance: ONDANSETRON
     Indication: Postoperative care
     Route: 065

REACTIONS (1)
  - Haemothorax [Recovered/Resolved]
